FAERS Safety Report 14413780 (Version 1)
Quarter: 2018Q1

REPORT INFORMATION
  Report Type: Spontaneous
  Country: US (occurrence: US)
  Receive Date: 20180117
  Receipt Date: 20180117
  Transmission Date: 20180509
  Serious: Yes (Life-Threatening, Hospitalization)
  Sender: FDA-Public Use
  Company Number: None

PATIENT
  Age: 63 Year
  Sex: Female
  Weight: 83.9 kg

DRUGS (5)
  1. MAGNESIUM OXIDE. [Concomitant]
     Active Substance: MAGNESIUM OXIDE
  2. RIVAROXABAN [Concomitant]
     Active Substance: RIVAROXABAN
  3. ASCORBIC ACID. [Concomitant]
     Active Substance: ASCORBIC ACID
  4. ATENOLOL. [Concomitant]
     Active Substance: ATENOLOL
  5. INLYTA [Suspect]
     Active Substance: AXITINIB
     Indication: RENAL CELL CARCINOMA
     Route: 048
     Dates: start: 20171220, end: 20171226

REACTIONS (1)
  - Posterior reversible encephalopathy syndrome [None]

NARRATIVE: CASE EVENT DATE: 20171226
